FAERS Safety Report 20771661 (Version 2)
Quarter: 2024Q2

REPORT INFORMATION
  Report Type: Other
  Country: US (occurrence: None)
  Receive Date: 20220430
  Receipt Date: 20240605
  Transmission Date: 20240717
  Serious: Yes (Other)
  Sender: FDA-Public Use
  Company Number: US-ROCHE-3085738

PATIENT
  Age: 74 Year
  Sex: Male
  Weight: 78.29 kg

DRUGS (8)
  1. ESBRIET [Suspect]
     Active Substance: PIRFENIDONE
     Indication: Idiopathic pulmonary fibrosis
     Dosage: TAKE 3 TABLETS BY MOUTH THREE TIMES A DAY WITH MEALS, ONGOING: YES
     Route: 048
     Dates: start: 20211217
  2. ESBRIET [Suspect]
     Active Substance: PIRFENIDONE
     Indication: Endocrine disorder
  3. ESBRIET [Suspect]
     Active Substance: PIRFENIDONE
     Indication: Idiopathic pulmonary fibrosis
     Dosage: 9 PILS DAY - 3 X DAY WITH FOOD, CAPSULE WITH PFD PRINTED ON IT
     Route: 048
     Dates: start: 202212
  4. ESBRIET [Suspect]
     Active Substance: PIRFENIDONE
     Indication: Interstitial lung disease
     Route: 048
     Dates: start: 20231004
  5. LISINOPRIL [Concomitant]
     Active Substance: LISINOPRIL
  6. FAMOTIDINE [Concomitant]
     Active Substance: FAMOTIDINE
  7. OMEPRAZOLE [Concomitant]
     Active Substance: DONEPEZIL HYDROCHLORIDE\OMEPRAZOLE\OMEPRAZOLE MAGNESIUM
  8. OFEV [Concomitant]
     Active Substance: NINTEDANIB

REACTIONS (12)
  - Pulmonary hypertension [Not Recovered/Not Resolved]
  - Respiratory failure [Unknown]
  - Dyspnoea [Not Recovered/Not Resolved]
  - Cyanosis [Not Recovered/Not Resolved]
  - Decreased appetite [Not Recovered/Not Resolved]
  - Fatigue [Not Recovered/Not Resolved]
  - Dizziness [Not Recovered/Not Resolved]
  - Gait disturbance [Not Recovered/Not Resolved]
  - Weight decreased [Unknown]
  - Diarrhoea [Unknown]
  - Bowel movement irregularity [Unknown]
  - Oesophagitis [Unknown]

NARRATIVE: CASE EVENT DATE: 20240301
